FAERS Safety Report 8262774-1 (Version None)
Quarter: 2012Q1

REPORT INFORMATION
  Report Type: 
  Country: None (occurrence: None)
  Receive Date: 20120327
  Receipt Date: 20081216
  Transmission Date: 20120608
  Serious: Yes (Disabling)
  Sender: FDA-Public Use
  Company Number: PHEH2008US11152

PATIENT
  Age: 77 Year
  Sex: Female
  Weight: 53.1 kg

DRUGS (7)
  1. AMILORIDE (AMILORIDE) [Concomitant]
  2. ZYRTEC [Concomitant]
  3. PRAVACHOL [Concomitant]
  4. GLEEVEC [Suspect]
     Indication: NECROTISING COLITIS
     Dosage: 400 MG, BID, ORAL
     Route: 048
     Dates: start: 20050601, end: 20080401
  5. GLEEVEC [Suspect]
     Indication: GASTROINTESTINAL STROMAL TUMOUR
     Dosage: 400 MG, BID, ORAL
     Route: 048
     Dates: start: 20050601, end: 20080401
  6. AMBIEN [Concomitant]
  7. FOSAMAX [Concomitant]

REACTIONS (6)
  - RASH [None]
  - DYSPNOEA [None]
  - PERIORBITAL OEDEMA [None]
  - PERICARDIAL EFFUSION [None]
  - DIARRHOEA [None]
  - DISEASE PROGRESSION [None]
